FAERS Safety Report 7972716-1 (Version None)
Quarter: 2011Q4

REPORT INFORMATION
  Report Type: 
  Country: None (occurrence: None)
  Receive Date: 20111213
  Receipt Date: 20111207
  Transmission Date: 20120403
  Serious: No
  Sender: FDA-Public Use
  Company Number: US-B.I. PHARMACEUTICALS,INC./RIDGEFIELD-2011-BP-27217BP

PATIENT
  Age: 69 Year
  Sex: Female

DRUGS (8)
  1. VICODIN [Concomitant]
     Indication: ARTHRITIS
     Route: 048
  2. ASPIRIN [Concomitant]
     Indication: ARTHRITIS
     Route: 048
  3. SPIRIVA [Suspect]
     Indication: EMPHYSEMA
     Dosage: 18 MCG
     Route: 055
     Dates: start: 20061201
  4. RENAL CAPS [Concomitant]
     Indication: RENAL FAILURE
     Route: 048
  5. SYNTHROID [Concomitant]
     Indication: BASEDOW'S DISEASE
     Route: 048
  6. GLIMEPIRIDE [Concomitant]
     Indication: DIABETES MELLITUS
     Route: 048
  7. NITROGLYCERIN [Concomitant]
     Indication: CHEST PAIN
     Route: 048
  8. 4 DIFFERENT MEDICATIONS [Concomitant]
     Indication: HYPERTENSION
     Route: 048

REACTIONS (2)
  - KIDNEY INFECTION [None]
  - DYSPNOEA [None]
